FAERS Safety Report 9943297 (Version 36)
Quarter: 2018Q2

REPORT INFORMATION
  Report Type: Report from Study
  Country: CA (occurrence: CA)
  Receive Date: 20140303
  Receipt Date: 20180607
  Transmission Date: 20180711
  Serious: Yes (Hospitalization, Other)
  Sender: FDA-Public Use
  Company Number: PHHY2011CA95814

PATIENT
  Age: 79 Year
  Sex: Male

DRUGS (18)
  1. VITAMIN E [Concomitant]
     Active Substance: .ALPHA.-TOCOPHEROL
     Indication: PRODUCT USED FOR UNKNOWN INDICATION
     Route: 065
  2. VITAMIN D [Suspect]
     Active Substance: CHOLECALCIFEROL
     Indication: PRODUCT USED FOR UNKNOWN INDICATION
     Route: 065
  3. TECTA [Concomitant]
     Active Substance: PANTOPRAZOLE MAGNESIUM
     Indication: PRODUCT USED FOR UNKNOWN INDICATION
     Route: 065
  4. SENOKOT [Concomitant]
     Active Substance: SENNOSIDES
     Indication: PRODUCT USED FOR UNKNOWN INDICATION
     Route: 065
  5. WARFARIN [Concomitant]
     Active Substance: WARFARIN
     Indication: PRODUCT USED FOR UNKNOWN INDICATION
     Route: 065
  6. LIPITOR [Concomitant]
     Active Substance: ATORVASTATIN CALCIUM
     Indication: PRODUCT USED FOR UNKNOWN INDICATION
     Route: 065
  7. COUMADINE [Concomitant]
     Active Substance: WARFARIN SODIUM
     Indication: PRODUCT USED FOR UNKNOWN INDICATION
     Route: 065
  8. SYNTHROID [Concomitant]
     Active Substance: LEVOTHYROXINE SODIUM
     Indication: PRODUCT USED FOR UNKNOWN INDICATION
     Dosage: 0.112 MG, BID
     Route: 065
     Dates: start: 2008
  9. DUOTRAV [Concomitant]
     Active Substance: TIMOLOL MALEATE\TRAVOPROST
     Indication: PRODUCT USED FOR UNKNOWN INDICATION
     Route: 065
  10. LIPIDIL [Concomitant]
     Active Substance: FENOFIBRATE
     Indication: PRODUCT USED FOR UNKNOWN INDICATION
     Route: 065
  11. SANDOSTATIN LAR DEPOT [Suspect]
     Active Substance: OCTREOTIDE ACETATE
     Dosage: 30 MG, Q3W (EVERY 3 WEEKS)
     Route: 030
     Dates: start: 20130415
  12. NITROSPRAY [Concomitant]
     Active Substance: NITROGLYCERIN
     Indication: PRODUCT USED FOR UNKNOWN INDICATION
     Dosage: UNK, PRN
     Route: 055
  13. ALFAZOSIN [Concomitant]
     Active Substance: ALFUZOSIN
     Indication: PRODUCT USED FOR UNKNOWN INDICATION
     Route: 065
  14. COLACE [Concomitant]
     Active Substance: DOCUSATE SODIUM
     Indication: PRODUCT USED FOR UNKNOWN INDICATION
     Route: 065
  15. CORTEF [Concomitant]
     Active Substance: HYDROCORTISONE
     Indication: PRODUCT USED FOR UNKNOWN INDICATION
     Dosage: 10 (Q MORNING)
     Route: 065
     Dates: start: 2008
  16. ASACOL [Concomitant]
     Active Substance: MESALAMINE
     Indication: PRODUCT USED FOR UNKNOWN INDICATION
     Dosage: 400 MG, TID
     Route: 048
     Dates: start: 2008
  17. SANDOSTATIN LAR DEPOT [Suspect]
     Active Substance: OCTREOTIDE ACETATE
     Indication: GASTRINOMA
     Dosage: 30 MG, Q3W (EVERY 3 WEEKS)
     Route: 030
     Dates: start: 20110907
  18. ANDRODERM [Concomitant]
     Active Substance: TESTOSTERONE
     Indication: PRODUCT USED FOR UNKNOWN INDICATION
     Dosage: 705 MG, BID
     Route: 065
     Dates: start: 2008

REACTIONS (24)
  - Hypokinesia [Not Recovered/Not Resolved]
  - Injection site mass [Unknown]
  - Injection site swelling [Unknown]
  - Inappropriate schedule of drug administration [Unknown]
  - Gait inability [Not Recovered/Not Resolved]
  - Blood pressure systolic increased [Unknown]
  - Muscle spasms [Unknown]
  - Blood pressure diastolic decreased [Unknown]
  - Injection site haematoma [Unknown]
  - Injection site pain [Not Recovered/Not Resolved]
  - Head injury [Unknown]
  - Pain in extremity [Recovered/Resolved]
  - Fall [Unknown]
  - Back pain [Not Recovered/Not Resolved]
  - Injection site cyst [Unknown]
  - Blood pressure diastolic increased [Unknown]
  - Hypotension [Unknown]
  - Dizziness [Unknown]
  - Pain [Unknown]
  - Seroma [Unknown]
  - Syncope [Unknown]
  - Body temperature decreased [Unknown]
  - Asthenia [Unknown]
  - Gait disturbance [Not Recovered/Not Resolved]

NARRATIVE: CASE EVENT DATE: 20130506
